FAERS Safety Report 26204635 (Version 1)
Quarter: 2025Q4

REPORT INFORMATION
  Report Type: Spontaneous
  Country: EU (occurrence: EU)
  Receive Date: 20251227
  Receipt Date: 20251227
  Transmission Date: 20260119
  Serious: Yes (Hospitalization, Other)
  Sender: AUROBINDO
  Company Number: EU-AEMPS-1798441

PATIENT
  Age: 60 Year
  Sex: Female
  Weight: 70 kg

DRUGS (3)
  1. CARBOPLATIN [Suspect]
     Active Substance: CARBOPLATIN
     Indication: Breast cancer
     Dosage: ?LTIM CICLO ANTES DE LA RAM  20/06//2024 1000MILIGRAMOS (591.72MG/M2)
  2. PACLITAXEL [Suspect]
     Active Substance: PACLITAXEL
     Indication: Breast cancer
     Dosage: 1 CICLO 07/03//2024 95MILIGRAMOS (56.21MG/TOTAL)**REDUCCI?N 70% ?LTIMO CICLO 4 EL 20/06/2024
     Dates: start: 20240307, end: 20240620
  3. KEYTRUDA 25 MG/ML CONCENTRADO PARA SOLUCION PARA PERFUSION, 1 vial de [Concomitant]
     Indication: Breast cancer
     Dosage: 1 CICLO 07/03//2024 200MILIGRAMOS (200MG/TOTAL)

REACTIONS (1)
  - Febrile neutropenia [Recovered/Resolved]

NARRATIVE: CASE EVENT DATE: 20240701
